FAERS Safety Report 8835080 (Version 1)
Quarter: 2012Q4

REPORT INFORMATION
  Report Type: Spontaneous
  Country: JP (occurrence: None)
  Receive Date: 20121009
  Receipt Date: 20121009
  Transmission Date: 20130627
  Serious: Yes (Hospitalization)
  Sender: FDA-Public Use
  Company Number: DSA_57414_2012

PATIENT
  Sex: Male
  Weight: 55.1 kg

DRUGS (6)
  1. MACUGEN [Suspect]
     Indication: AGE-RELATED MACULAR DEGENERATION
     Route: 031
     Dates: start: 20090427, end: 20090427
  2. MACUGEN [Suspect]
     Indication: CHOROIDAL NEOVASCULARISATION
     Route: 031
     Dates: start: 20090427, end: 20090427
  3. XYLOCAINE [Concomitant]
  4. BENOXIL [Concomitant]
  5. PRORENAL [Concomitant]
  6. CRAVIT [Concomitant]

REACTIONS (5)
  - Hypertension [None]
  - Gastric ulcer [None]
  - Pallor [None]
  - Cerebral infarction [None]
  - Blood pressure diastolic decreased [None]
